FAERS Safety Report 25830815 (Version 1)
Quarter: 2025Q3

REPORT INFORMATION
  Report Type: Spontaneous
  Country: IN (occurrence: IN)
  Receive Date: 20250922
  Receipt Date: 20250922
  Transmission Date: 20251020
  Serious: Yes (Hospitalization)
  Sender: BAUSCH AND LOMB
  Company Number: IN-MLMSERVICE-20250905-PI632498-00059-1

PATIENT
  Age: 45 Year
  Sex: Female

DRUGS (4)
  1. AZATHIOPRINE [Suspect]
     Active Substance: AZATHIOPRINE
     Indication: Systemic lupus erythematosus
     Dosage: AZATHIOPRINE
     Route: 065
     Dates: start: 2021, end: 2021
  2. AZATHIOPRINE [Suspect]
     Active Substance: AZATHIOPRINE
     Dosage: 50 MG IN THE MORNING AND 25 MG AT NIGHT AFTER 2 WEEKS
     Route: 065
     Dates: start: 2021, end: 2021
  3. MYCOPHENOLATE MOFETIL [Concomitant]
     Active Substance: MYCOPHENOLATE MOFETIL
     Indication: Systemic lupus erythematosus
     Dates: start: 2019, end: 2019
  4. HYDROXYCHLOROQUINE [Concomitant]
     Active Substance: HYDROXYCHLOROQUINE
     Indication: Systemic lupus erythematosus
     Dosage: ONCE PER DAY
     Dates: start: 2019, end: 2019

REACTIONS (3)
  - Myelosuppression [Recovered/Resolved]
  - Leukopenia [Recovered/Resolved]
  - Alopecia [Recovered/Resolved]

NARRATIVE: CASE EVENT DATE: 20210101
